FAERS Safety Report 7442171-9 (Version None)
Quarter: 2011Q2

REPORT INFORMATION
  Report Type: 
  Country: None (occurrence: None)
  Receive Date: 20110428
  Receipt Date: 20110425
  Transmission Date: 20111010
  Serious: Yes (Death, Hospitalization)
  Sender: FDA-Public Use
  Company Number: PHHY2011CA34778

PATIENT
  Sex: Female
  Weight: 50.9 kg

DRUGS (1)
  1. RIVASTIGMINE [Suspect]
     Indication: DEMENTIA ALZHEIMER'S TYPE
     Dosage: 5 CM^2 (4.6 MG), UNK
     Route: 062

REACTIONS (1)
  - SEPSIS [None]
